FAERS Safety Report 11131261 (Version 1)
Quarter: 2015Q2

REPORT INFORMATION
  Report Type: Spontaneous
  Country: US (occurrence: US)
  Receive Date: 20150522
  Receipt Date: 20150522
  Transmission Date: 20150821
  Serious: No
  Sender: FDA-Public Use
  Company Number: US-ZOGENIX, INC.-2015ZX000028

PATIENT
  Age: 80 Year
  Sex: Male
  Weight: 103.51 kg

DRUGS (4)
  1. NORVASC [Concomitant]
     Active Substance: AMLODIPINE BESYLATE
     Indication: BLOOD PRESSURE
     Route: 048
  2. ZOHYDRO [Suspect]
     Active Substance: HYDROCODONE BITARTRATE
     Indication: PAIN
     Route: 048
     Dates: start: 20150222, end: 20150224
  3. LOSARTAN [Concomitant]
     Active Substance: LOSARTAN
     Indication: BLOOD PRESSURE
     Route: 048
  4. SIMVASTATIN. [Concomitant]
     Active Substance: SIMVASTATIN
     Indication: BLOOD CHOLESTEROL
     Route: 048

REACTIONS (10)
  - Feeling cold [Recovering/Resolving]
  - Feeling abnormal [Recovering/Resolving]
  - Decreased appetite [Recovering/Resolving]
  - Parosmia [Recovering/Resolving]
  - Somnolence [Recovering/Resolving]
  - Condition aggravated [Recovering/Resolving]
  - Pain [Not Recovered/Not Resolved]
  - Therapeutic response decreased [Not Recovered/Not Resolved]
  - Headache [Recovering/Resolving]
  - Malaise [Recovering/Resolving]

NARRATIVE: CASE EVENT DATE: 20150222
